FAERS Safety Report 13727659 (Version 5)
Quarter: 2017Q3

REPORT INFORMATION
  Report Type: Report from Study
  Country: US (occurrence: US)
  Receive Date: 20170707
  Receipt Date: 20170818
  Transmission Date: 20171127
  Serious: Yes (Hospitalization, Other)
  Sender: FDA-Public Use
  Company Number: US-AMGEN-USASL2017101675

PATIENT
  Sex: Male

DRUGS (17)
  1. ENBREL [Suspect]
     Active Substance: ETANERCEPT
     Indication: RHEUMATOID ARTHRITIS
     Dosage: UNK
     Route: 065
  2. QUETIAPINE. [Concomitant]
     Active Substance: QUETIAPINE
     Dosage: 50 MG, QD
     Route: 048
  3. CHLORHEXIDINE [Concomitant]
     Active Substance: CHLORHEXIDINE
     Dosage: 15 ML, BID
     Route: 048
  4. OCULAR LUBRICANT [Concomitant]
     Dosage: 2 DROPS, TID
  5. TIOTROPIUM [Concomitant]
     Active Substance: TIOTROPIUM
     Dosage: 18 MUG, QD
  6. OXYCODONE [Concomitant]
     Active Substance: OXYCODONE
     Dosage: 5 MG, EVERY SIX HOURS
     Route: 048
  7. POLYETHYLENE GLYCOL 3350. [Concomitant]
     Active Substance: POLYETHYLENE GLYCOL 3350
     Dosage: 17 G, QD
     Route: 048
  8. SENNA [Concomitant]
     Active Substance: SENNA LEAF\SENNOSIDES\SENNOSIDES A AND B
     Dosage: 8.6 MG, 2 TABLETS BEDTIME
  9. DOCUSATE SOD [Concomitant]
     Dosage: 100 MG, EVERY TWELVE HOURS
     Route: 048
  10. SIMVASTATIN. [Concomitant]
     Active Substance: SIMVASTATIN
     Dosage: 40 MG, BEDTIME
  11. ALBUTEROL. [Concomitant]
     Active Substance: ALBUTEROL
     Dosage: 90 (MCG/INCH INHALATION POWDER)
     Route: 045
  12. THIAMINE. [Concomitant]
     Active Substance: THIAMINE
     Dosage: 100 MG, QD
     Route: 048
  13. HEPARIN [Concomitant]
     Active Substance: HEPARIN SODIUM
     Dosage: 5000 UNIT, EVERY EIGHT HOURS
     Route: 058
  14. MORPHINE [Concomitant]
     Active Substance: MORPHINE
     Dosage: 15 MG, EVERY TWELVE HOURS
     Route: 048
  15. ZOLPIDEM [Concomitant]
     Active Substance: ZOLPIDEM\ZOLPIDEM TARTRATE
     Dosage: 10 MG, BEDTIME
     Route: 048
  16. ACETAMINOPHEN. [Concomitant]
     Active Substance: ACETAMINOPHEN
     Dosage: 650 MG, QID, AS NEEDED , NOT TO EXCEED 4000 MG PER DAY
     Route: 048
  17. INDOMETHACIN. [Concomitant]
     Active Substance: INDOMETHACIN
     Dosage: 75 MG, QD
     Route: 048

REACTIONS (40)
  - Arteriosclerosis coronary artery [Unknown]
  - Insomnia [Unknown]
  - Keratopathy [Unknown]
  - Arthralgia [Unknown]
  - Rib fracture [Unknown]
  - Patella fracture [Unknown]
  - Lower limb fracture [Unknown]
  - Diplopia [Unknown]
  - Pupils unequal [Unknown]
  - Renal cyst [Unknown]
  - Craniocerebral injury [Unknown]
  - Road traffic accident [Unknown]
  - Unresponsive to stimuli [Recovering/Resolving]
  - Dizziness [Unknown]
  - Retrograde amnesia [Unknown]
  - Hand fracture [Unknown]
  - Breath sounds abnormal [Unknown]
  - Back pain [Unknown]
  - VIth nerve paralysis [Unknown]
  - Vitreous floaters [Unknown]
  - Lung disorder [Unknown]
  - Gait disturbance [Unknown]
  - Femur fracture [Unknown]
  - Facial bones fracture [Unknown]
  - Memory impairment [Unknown]
  - Headache [Unknown]
  - Avulsion fracture [Unknown]
  - Radius fracture [Unknown]
  - Wheezing [Unknown]
  - Skin lesion [Unknown]
  - Mobility decreased [Unknown]
  - Hip fracture [Unknown]
  - Pain [Unknown]
  - Decreased activity [Unknown]
  - Acetabulum fracture [Unknown]
  - Diverticulum intestinal [Unknown]
  - Skull fracture [Unknown]
  - Joint dislocation [Unknown]
  - Hypoacusis [Unknown]
  - Vertigo [Unknown]

NARRATIVE: CASE EVENT DATE: 2016
